FAERS Safety Report 17490182 (Version 1)
Quarter: 2020Q1

REPORT INFORMATION
  Report Type: Spontaneous
  Country: US (occurrence: US)
  Receive Date: 20200303
  Receipt Date: 20200303
  Transmission Date: 20200409
  Serious: No
  Sender: FDA-Public Use
  Company Number: US-AKORN PHARMACEUTICALS-2019AKN01800

PATIENT
  Sex: Female
  Weight: 71.2 kg

DRUGS (2)
  1. MYORISAN [Suspect]
     Active Substance: ISOTRETINOIN
     Indication: ACNE
     Dosage: 40 MG, 2X/DAY
     Route: 048
     Dates: start: 20190621, end: 20190815
  2. BIRTH CONTROL [Concomitant]
     Active Substance: UNSPECIFIED INGREDIENT

REACTIONS (6)
  - Lip dry [Recovered/Resolved]
  - Dry eye [Recovered/Resolved]
  - Epistaxis [Recovered/Resolved]
  - Skin exfoliation [Recovered/Resolved]
  - Blister [Recovered/Resolved]
  - Xerosis [Recovered/Resolved]

NARRATIVE: CASE EVENT DATE: 2019
